FAERS Safety Report 17554621 (Version 3)
Quarter: 2020Q1

REPORT INFORMATION
  Report Type: Spontaneous
  Country: CA (occurrence: CA)
  Receive Date: 20200318
  Receipt Date: 20200325
  Transmission Date: 20200409
  Serious: Yes (Other)
  Sender: FDA-Public Use
  Company Number: CA-ORION CORPORATION ORION PHARMA-TREX2020-1398

PATIENT
  Age: 70 Year
  Sex: Male

DRUGS (4)
  1. METHOTREXATE (TRADE NAME UNKNOWN) [Suspect]
     Active Substance: METHOTREXATE
     Indication: PRODUCT USED FOR UNKNOWN INDICATION
     Route: 065
  2. CORTISONE [Concomitant]
     Active Substance: CORTISONE
     Route: 065
  3. CALCIUM [Concomitant]
     Active Substance: CALCIUM
     Route: 065
  4. HYDROXYCHLOROQUINE [Concomitant]
     Active Substance: HYDROXYCHLOROQUINE
     Route: 065

REACTIONS (7)
  - Arthralgia [Unknown]
  - Nausea [Unknown]
  - Peripheral swelling [Unknown]
  - Drug intolerance [Unknown]
  - Joint swelling [Unknown]
  - Drug ineffective [Unknown]
  - Fatigue [Unknown]
